FAERS Safety Report 19154142 (Version 2)
Quarter: 2021Q3

REPORT INFORMATION
  Report Type: Spontaneous
  Country: BR (occurrence: BR)
  Receive Date: 20210419
  Receipt Date: 20210723
  Transmission Date: 20211014
  Serious: Yes (Other)
  Sender: FDA-Public Use
  Company Number: BR-ASTRAZENECA-2021A307068

PATIENT
  Sex: Male

DRUGS (1)
  1. DURVALUMAB. [Suspect]
     Active Substance: DURVALUMAB
     Dosage: DOSE UNKNOWN
     Route: 042

REACTIONS (6)
  - Pulmonary mass [Unknown]
  - Cerebral haemorrhage [Unknown]
  - Malignant neoplasm progression [Unknown]
  - Seizure [Unknown]
  - Central nervous system lesion [Unknown]
  - Brain oedema [Unknown]

NARRATIVE: CASE EVENT DATE: 20201007
